FAERS Safety Report 10305255 (Version 1)
Quarter: 2014Q3

REPORT INFORMATION
  Report Type: Spontaneous
  Country: US (occurrence: None)
  Receive Date: 20140711
  Receipt Date: 20140711
  Transmission Date: 20150326
  Serious: Yes (Life-Threatening, Hospitalization)
  Sender: FDA-Public Use
  Company Number: None

PATIENT
  Age: 40 Year
  Sex: Female
  Weight: 95.71 kg

DRUGS (1)
  1. BC CHERRY [Suspect]
     Active Substance: ASPIRIN\CAFFEINE

REACTIONS (14)
  - Diarrhoea [None]
  - Abdominal distension [None]
  - Wrong technique in drug usage process [None]
  - Gastric haemorrhage [None]
  - Infection [None]
  - Blood potassium decreased [None]
  - Anaemia [None]
  - Loss of consciousness [None]
  - Abdominal pain upper [None]
  - Colitis [None]
  - Haematemesis [None]
  - Vomiting [None]
  - Fear [None]
  - Dehydration [None]

NARRATIVE: CASE EVENT DATE: 20140707
